FAERS Safety Report 6854557 (Version 2)
Quarter: 2016Q3

REPORT INFORMATION
  Report Type: Report from Study
  Country: US (occurrence: US)
  Receive Date: 20081216
  Receipt Date: 20160906
  Transmission Date: 20161109
  Serious: Yes (Hospitalization)
  Sender: FDA-Public Use
  Company Number: US-PFIZER INC-2008067346

PATIENT
  Age: 53 Year
  Sex: Male
  Weight: 127 kg

DRUGS (17)
  1. NAPROXEN. [Suspect]
     Active Substance: NAPROXEN
     Indication: RHEUMATOID ARTHRITIS
  2. ATORVASTATIN [Concomitant]
     Active Substance: ATORVASTATIN
     Dosage: 40 MG, 1X/DAY
     Route: 048
     Dates: start: 19990301
  3. CLOPIDOGREL [Concomitant]
     Active Substance: CLOPIDOGREL BISULFATE
     Dosage: 75 MG, 1X/DAY
     Route: 048
     Dates: start: 20010601
  4. CALCIUM MAGNESIUM ZINC [Concomitant]
     Active Substance: CALCIUM\MAGNESIUM\ZINC
     Dosage: DAILY
     Route: 048
     Dates: start: 19850101
  5. TOPROL XL [Concomitant]
     Active Substance: METOPROLOL SUCCINATE
     Dosage: 100 MG, 1X/DAY
     Route: 048
     Dates: start: 19990301
  6. METOLAZONE. [Concomitant]
     Active Substance: METOLAZONE
     Dosage: 800 MG, AS NEEDED
     Route: 048
     Dates: start: 20070601
  7. NEXIUM [Concomitant]
     Active Substance: ESOMEPRAZOLE MAGNESIUM
     Dosage: 40 MG, 1X/DAY
     Route: 048
     Dates: start: 20070725
  8. TRAMADOL. [Concomitant]
     Active Substance: TRAMADOL
     Dosage: PRN
     Route: 048
     Dates: start: 20071115
  9. FISH OIL [Concomitant]
     Active Substance: FISH OIL
     Dosage: 2000 MG, 1X/DAY
     Route: 048
     Dates: start: 20040301
  10. CYCLOBENZAPRINE [Concomitant]
     Active Substance: CYCLOBENZAPRINE
     Dosage: 10 MG, 1X/DAY
     Route: 048
     Dates: start: 20080201
  11. HYDROCODONE W/ACETAMINOPHEN [Concomitant]
     Active Substance: ACETAMINOPHEN\HYDROCODONE BITARTRATE
     Dosage: 500/5MG,PRN
     Route: 048
     Dates: start: 19990301
  12. MORPHINE SULFATE. [Concomitant]
     Active Substance: MORPHINE SULFATE
     Dosage: PRN
     Route: 048
     Dates: start: 20080201
  13. MULTIVITAMINS [Concomitant]
     Active Substance: VITAMINS
     Dosage: 500 MG, 1X/DAY
     Route: 048
     Dates: start: 19850101
  14. NAPROXEN. [Suspect]
     Active Substance: NAPROXEN
     Indication: OSTEOARTHRITIS
     Dosage: UNK
     Route: 048
     Dates: start: 20070723, end: 20110307
  15. NITROGLYCERIN. [Concomitant]
     Active Substance: NITROGLYCERIN
     Dosage: 0.4 MG, AS NEEDED
     Route: 060
     Dates: start: 19990101
  16. LOTREL [Concomitant]
     Active Substance: AMLODIPINE BESYLATE\BENAZEPRIL HYDROCHLORIDE
     Dosage: 10/40MG,DAILY
     Route: 048
     Dates: start: 20010101
  17. POTASSIUM [Concomitant]
     Active Substance: POTASSIUM
     Dosage: 99 MEQ, 2X/DAY
     Route: 048
     Dates: start: 19850101

REACTIONS (2)
  - Spinal nerve stimulator implantation [Recovered/Resolved]
  - Wound decomposition [Recovered/Resolved]

NARRATIVE: CASE EVENT DATE: 20080806
